FAERS Safety Report 8201924-X (Version None)
Quarter: 2012Q1

REPORT INFORMATION
  Report Type: 
  Country: None (occurrence: None)
  Receive Date: 20120312
  Receipt Date: 20120301
  Transmission Date: 20120608
  Serious: Yes (Hospitalization, Disabling, Other)
  Sender: FDA-Public Use
  Company Number: PHHY2012BR009029

PATIENT
  Sex: Male

DRUGS (10)
  1. NEOZINE [Concomitant]
     Dosage: 6 DROPS IN THE MORNING AND 10 DROPS AT NIGHT
     Dates: start: 20100101
  2. ATROVENT [Concomitant]
     Indication: EMPHYSEMA
     Dosage: 20 DROPS ON SALINE SOLUTION 3 TIMES A DAY
  3. PANTOPRAZOLE [Concomitant]
     Indication: GASTROOESOPHAGEAL REFLUX DISEASE
     Dosage: 20 MG, QD
     Dates: start: 20100101
  4. TEGRETOL [Suspect]
     Indication: CONVULSION
     Dosage: 200 MG, ONE TABLET IN THE MORNING AND OTHER AT NIGHT
  5. CITALOPRAM [Concomitant]
     Dosage: 10 MG, PER DAY
     Dates: start: 20100101
  6. RISPERIDONE [Concomitant]
     Dosage: HALF A TABLE IN THE MORNING, 1 TABLET IN THE AFTERNOON AND 1 TABLET AT NIGHT
     Dates: start: 20100101
  7. SPIRIVA [Concomitant]
     Indication: EMPHYSEMA
     Dosage: 2.5 MG, QD
     Dates: start: 20100601
  8. ENOXAPARIN SODIUM [Concomitant]
     Indication: THROMBOSIS PROPHYLAXIS
     Dosage: 20 MG, QD
     Dates: start: 20100601
  9. MEMANTINE HYDROCHLORIDE [Concomitant]
     Dosage: 10 MG, 1 TABLET IN THE MORNING AND 1 TABLET AT NIGHT
     Dates: start: 20100101
  10. FLORINEF [Concomitant]
     Indication: EMPHYSEMA
     Dosage: 0.1 MG, QD

REACTIONS (9)
  - HAEMATOMA [None]
  - CEREBRAL HAEMORRHAGE [None]
  - FALL [None]
  - HEMIPLEGIA [None]
  - CONVULSION [None]
  - HEAD INJURY [None]
  - CEREBROVASCULAR ACCIDENT [None]
  - APHTHOUS STOMATITIS [None]
  - ORAL NEOPLASM [None]
